FAERS Safety Report 10548169 (Version 3)
Quarter: 2014Q4

REPORT INFORMATION
  Report Type: Spontaneous
  Country: CN (occurrence: CN)
  Receive Date: 20141028
  Receipt Date: 20141202
  Transmission Date: 20150529
  Serious: Yes (Life-Threatening, Other)
  Sender: FDA-Public Use
  Company Number: CN-ROCHE-1479598

PATIENT
  Age: 37 Year
  Sex: Female
  Weight: 60 kg

DRUGS (5)
  1. GELATIN/SODIUM CHLORIDE [Suspect]
     Active Substance: GELATIN\SODIUM CHLORIDE
     Indication: PRODUCT USED FOR UNKNOWN INDICATION
     Route: 041
  2. DIPRIVAN [Suspect]
     Active Substance: PROPOFOL
     Indication: ANAESTHESIA
     Route: 065
     Dates: start: 20141023, end: 20141023
  3. VECURONIUM BROMIDE. [Concomitant]
     Active Substance: VECURONIUM BROMIDE
     Indication: ANAESTHESIA
     Route: 042
     Dates: start: 20141023, end: 20141023
  4. ROCEPHIN [Suspect]
     Active Substance: CEFTRIAXONE SODIUM
     Indication: PROPHYLAXIS
     Route: 041
     Dates: start: 20141023, end: 20141023
  5. DIPRIVAN [Suspect]
     Active Substance: PROPOFOL
     Route: 065
     Dates: start: 20141023

REACTIONS (5)
  - Rash [Recovering/Resolving]
  - Acute pulmonary oedema [Recovered/Resolved]
  - Pyrexia [Unknown]
  - Anaphylactic shock [Recovered/Resolved]
  - Shock [Unknown]

NARRATIVE: CASE EVENT DATE: 20141023
